FAERS Safety Report 5518446-7 (Version None)
Quarter: 2007Q4

REPORT INFORMATION
  Report Type: 
  Country: None (occurrence: None)
  Receive Date: 20071115
  Receipt Date: 20071105
  Transmission Date: 20080405
  Serious: Yes (Hospitalization)
  Sender: FDA-Public Use
  Company Number: US-PFIZER INC-2007094338

PATIENT
  Sex: Male
  Weight: 65.8 kg

DRUGS (7)
  1. CHANTIX [Suspect]
     Indication: SMOKING CESSATION THERAPY
     Dates: start: 20070301, end: 20070901
  2. LIPITOR [Suspect]
     Indication: BLOOD CHOLESTEROL
  3. ZOLOFT [Concomitant]
  4. AUGMENTIN '500' [Concomitant]
  5. MULTIVITAMINS AND IRON [Concomitant]
  6. ACETYLSALICYLIC ACID SRT [Concomitant]
  7. QUINAPRIL HCL [Concomitant]

REACTIONS (1)
  - CARDIAC FAILURE CONGESTIVE [None]
